FAERS Safety Report 9527584 (Version 1)
Quarter: 2013Q1

REPORT INFORMATION
  Report Type: Spontaneous
  Country: US (occurrence: None)
  Receive Date: 20130314
  Receipt Date: 20130314
  Transmission Date: 20140127
  Serious: No
  Sender: FDA-Public Use
  Company Number: 1212USA008855

PATIENT
  Age: 67 Year
  Sex: Male

DRUGS (3)
  1. RIBAVIRIN (RIBAVIRIN) CAPSULE [Suspect]
     Indication: HEPATITIS C
     Dosage: 6 DF, QD, CAPSULE?3 DF QD?1 DF QD
     Dates: start: 20121019
  2. VICTRELIS [Suspect]
     Indication: HEPATITIS C
     Dates: start: 20121116
  3. PEGASYS [Concomitant]

REACTIONS (5)
  - Fatigue [None]
  - Haemoglobin decreased [None]
  - Anaemia [None]
  - Somnolence [None]
  - Fatigue [None]
